FAERS Safety Report 18196457 (Version 1)
Quarter: 2020Q3

REPORT INFORMATION
  Report Type: Spontaneous
  Country: CA (occurrence: CA)
  Receive Date: 20200826
  Receipt Date: 20200826
  Transmission Date: 20201103
  Serious: Yes (Life-Threatening, Hospitalization)
  Sender: FDA-Public Use
  Company Number: CA-TEVA-2020-CA-1817795

PATIENT
  Age: 8 Year
  Sex: Male
  Weight: 20 kg

DRUGS (6)
  1. DOXORUBICIN LIPOSOMAL [Suspect]
     Active Substance: DOXORUBICIN
     Indication: HODGKIN^S DISEASE
     Dosage: 33 MILLIGRAM DAILY;
     Route: 042
  2. VINCRISTINE SULFATE. [Concomitant]
     Active Substance: VINCRISTINE SULFATE
  3. ETOPOSIDE. [Suspect]
     Active Substance: ETOPOSIDE
     Dosage: 100 MILLIGRAM DAILY;
     Route: 042
  4. POLYETHYLENE GLYCOL 3350. [Concomitant]
     Active Substance: POLYETHYLENE GLYCOL 3350
  5. SEPTRA [Concomitant]
     Active Substance: SULFAMETHOXAZOLE\TRIMETHOPRIM
  6. PANTOPRAZOLE [Concomitant]
     Active Substance: PANTOPRAZOLE

REACTIONS (2)
  - Febrile neutropenia [Unknown]
  - Respiratory disorder [Unknown]
